FAERS Safety Report 7385628-1 (Version None)
Quarter: 2011Q1

REPORT INFORMATION
  Report Type: 
  Country: None (occurrence: None)
  Receive Date: 20110331
  Receipt Date: 20110325
  Transmission Date: 20110831
  Serious: No
  Sender: FDA-Public Use
  Company Number: US-BIOGENIDEC-2011BI011498

PATIENT
  Sex: Female

DRUGS (2)
  1. TYSABRI [Suspect]
     Indication: MULTIPLE SCLEROSIS
     Route: 042
     Dates: start: 20101110
  2. AVONEX [Concomitant]
     Indication: MULTIPLE SCLEROSIS
     Route: 030
     Dates: start: 20020419

REACTIONS (7)
  - BALANCE DISORDER [None]
  - MULTIPLE ALLERGIES [None]
  - TRICHORRHEXIS [None]
  - DEPRESSION [None]
  - COGNITIVE DISORDER [None]
  - EYE SWELLING [None]
  - CONFUSIONAL STATE [None]
